FAERS Safety Report 7343420-8 (Version None)
Quarter: 2011Q1

REPORT INFORMATION
  Report Type: 
  Country: None (occurrence: None)
  Receive Date: 20110310
  Receipt Date: 20110223
  Transmission Date: 20110831
  Serious: Yes (Other)
  Sender: FDA-Public Use
  Company Number: US-BAYER-201035680NA

PATIENT
  Sex: Female
  Weight: 86.168 kg

DRUGS (7)
  1. YAZ [Suspect]
     Indication: PRODUCT USED FOR UNKNOWN INDICATION
     Dosage: UNK UNK, UNK
     Dates: start: 20080801, end: 20090101
  2. SKELAXIN [Concomitant]
     Dosage: 800 MG, UNK
     Dates: start: 20090102, end: 20090105
  3. ZEGERID [Concomitant]
     Indication: GASTROOESOPHAGEAL REFLUX DISEASE
     Dosage: UNK
     Dates: start: 20000101
  4. IBUPROFEN [Concomitant]
     Dosage: 800 MG, TID
     Dates: start: 20090102, end: 20090110
  5. YASMIN [Suspect]
     Indication: CONTRACEPTION
     Dosage: UNK UNK, UNK
     Route: 048
     Dates: start: 20030701, end: 20090101
  6. OCELLA [Suspect]
     Indication: CONTRACEPTION
     Dosage: UNK UNK, UNK
     Route: 048
     Dates: start: 20030701, end: 20090101
  7. VICODIN [Concomitant]
     Dosage: UNK UNK, PRN
     Dates: start: 20090104

REACTIONS (3)
  - DEEP VEIN THROMBOSIS [None]
  - MUSCULOSKELETAL PAIN [None]
  - PAIN IN EXTREMITY [None]
